FAERS Safety Report 4680689-2 (Version None)
Quarter: 2005Q2

REPORT INFORMATION
  Report Type: 
  Country: None (occurrence: None)
  Receive Date: 20050603
  Receipt Date: 20050519
  Transmission Date: 20051028
  Serious: Yes (Other)
  Sender: FDA-Public Use
  Company Number: 2005AP03020

PATIENT
  Age: 70 Year
  Sex: Female

DRUGS (2)
  1. CARBOCAINE [Suspect]
     Indication: LOCAL ANAESTHESIA
     Dates: start: 20040601, end: 20040601
  2. CARBOCAINE [Suspect]
     Indication: BACK PAIN
     Dates: start: 20040601, end: 20040601

REACTIONS (2)
  - BURNING SENSATION [None]
  - HYPOAESTHESIA [None]
